FAERS Safety Report 6142364-7 (Version None)
Quarter: 2009Q2

REPORT INFORMATION
  Report Type: 
  Country: None (occurrence: None)
  Receive Date: 20090403
  Receipt Date: 20090323
  Transmission Date: 20091009
  Serious: Yes (Death)
  Sender: FDA-Public Use
  Company Number: JP-PFIZER INC-2009188564

PATIENT

DRUGS (6)
  1. VORICONAZOLE [Suspect]
     Indication: BRONCHOPULMONARY ASPERGILLOSIS
     Dosage: 6 MG/KG, 1X/DAY
     Route: 042
     Dates: start: 20090310, end: 20090310
  2. VORICONAZOLE [Suspect]
     Dosage: 3 MG/KG, 1X/DAY
     Route: 042
     Dates: start: 20090311, end: 20090312
  3. CIPROXAN [Concomitant]
     Route: 042
     Dates: start: 20090310
  4. ASPENON [Concomitant]
     Route: 048
  5. GASTER [Concomitant]
     Route: 048
  6. KLARICID [Concomitant]
     Route: 048

REACTIONS (1)
  - DEATH [None]
